FAERS Safety Report 8514597-3 (Version None)
Quarter: 2012Q3

REPORT INFORMATION
  Report Type: 
  Country: None (occurrence: None)
  Receive Date: 20120717
  Receipt Date: 20120712
  Transmission Date: 20120928
  Serious: Yes (Other)
  Sender: FDA-Public Use
  Company Number: US-PFIZER INC-2012169012

PATIENT
  Sex: Female
  Weight: 85.261 kg

DRUGS (9)
  1. FOSAMAX [Concomitant]
     Indication: OSTEOPENIA
     Dosage: UNK, WEEKLY
  2. IBUPROFEN [Suspect]
     Indication: ARTHRITIS
     Dosage: 800 MG, UNK
     Dates: start: 20120101, end: 20120101
  3. IBUPROFEN [Suspect]
     Indication: BACK DISORDER
  4. VERAPAMIL [Concomitant]
     Indication: HYPERTENSION
     Dosage: 300 MG, DAILY
  5. ADVIL [Suspect]
     Indication: BACK DISORDER
  6. ACETAMINOPHEN [Suspect]
     Indication: ARTHRITIS
     Dosage: UNK
  7. LOSARTAN [Concomitant]
     Indication: HYPERTENSION
     Dosage: 25 MG, DAILY
  8. ADVIL [Suspect]
     Indication: ARTHRITIS
     Dosage: 2 DF, 2X/DAY
  9. SINGULAIR [Concomitant]
     Indication: ASTHMA
     Dosage: 10 MG, DAILY

REACTIONS (8)
  - ABDOMINAL PAIN UPPER [None]
  - SOMNOLENCE [None]
  - DRUG INEFFECTIVE [None]
  - BACK DISORDER [None]
  - POOR QUALITY DRUG ADMINISTERED [None]
  - BLOOD CALCIUM INCREASED [None]
  - DIARRHOEA [None]
  - TABLET PHYSICAL ISSUE [None]
